FAERS Safety Report 8297229-1 (Version None)
Quarter: 2012Q2

REPORT INFORMATION
  Report Type: 
  Country: None (occurrence: None)
  Receive Date: 20120417
  Receipt Date: 20120417
  Transmission Date: 20120825
  Serious: Yes (Hospitalization)
  Sender: FDA-Public Use
  Company Number: None

PATIENT
  Sex: Male
  Weight: 25.4 kg

DRUGS (3)
  1. VINCRISTINE SULFATE [Suspect]
     Dosage: 1.3 MG
  2. METHOTREXATE [Suspect]
     Dosage: 12 MG
  3. MERCAPTOPURINE [Suspect]
     Dosage: 800 MG

REACTIONS (10)
  - MUCOSAL INFLAMMATION [None]
  - MOUTH ULCERATION [None]
  - PALATAL DISORDER [None]
  - SINUSITIS [None]
  - LETHARGY [None]
  - ORAL HERPES [None]
  - ORAL NEOPLASM [None]
  - ORAL DISORDER [None]
  - ZYGOMYCOSIS [None]
  - BONE EROSION [None]
